FAERS Safety Report 7187330-8 (Version None)
Quarter: 2010Q4

REPORT INFORMATION
  Report Type: 
  Country: None (occurrence: None)
  Receive Date: 20101222
  Receipt Date: 20101215
  Transmission Date: 20110411
  Serious: Yes (Other)
  Sender: FDA-Public Use
  Company Number: ES-MERCK-1003ESP00037B1

PATIENT
  Sex: Female
  Weight: 1 kg

DRUGS (5)
  1. ISENTRESS [Suspect]
     Indication: HIV INFECTION
     Route: 064
     Dates: start: 20100301
  2. DARUNAVIR [Concomitant]
     Indication: HIV INFECTION
     Route: 064
     Dates: start: 20100301
  3. RITONAVIR [Concomitant]
     Indication: HIV INFECTION
     Route: 064
     Dates: start: 20100301
  4. LAMIVUDINE AND ZIDOVUDINE [Concomitant]
     Indication: HIV INFECTION
     Route: 064
     Dates: start: 20100301
  5. CORTICOSTEROIDS (UNSPECIFIED) [Concomitant]
     Indication: MATERNAL THERAPY TO ENHANCE FOETAL LUNG MATURITY
     Route: 064
     Dates: start: 20100824, end: 20100826

REACTIONS (3)
  - DRUG EXPOSURE DURING PREGNANCY [None]
  - PREMATURE BABY [None]
  - SMALL FOR DATES BABY [None]
